FAERS Safety Report 9532230 (Version 2)
Quarter: 2013Q3

REPORT INFORMATION
  Report Type: Spontaneous
  Country: BE (occurrence: BE)
  Receive Date: 20130918
  Receipt Date: 20130918
  Transmission Date: 20140515
  Serious: Yes (Disabling)
  Sender: FDA-Public Use
  Company Number: BE-B.I. PHARMACEUTICALS,INC./RIDGEFIELD-2013-BL-00184BL

PATIENT
  Age: 65 Year
  Sex: Male
  Weight: 77 kg

DRUGS (8)
  1. SIFROL [Suspect]
     Indication: RESTLESS LEGS SYNDROME
  2. SIFROL [Suspect]
  3. SIFROL [Suspect]
     Route: 048
  4. DIOVANE [Concomitant]
  5. L-THYROXINE [Concomitant]
     Indication: THYROIDECTOMY
     Dosage: DOSE OF ONE APPLICATION: 100 (UNIT NOT REPORTED)
  6. LIPITOR [Concomitant]
     Dosage: DOSE OF ONE APPLICATION: 10 (UNIT NOT REPORTED)
  7. TAMSULOSINE [Concomitant]
     Dosage: DOSE OF ONE APPLICATION: 0.4 (UNIT NOT REPORTED)
  8. EMCONCOR [Concomitant]
     Dosage: DOSE OF ONE APPLICATION: 5(UNIT NOT REPORTED)

REACTIONS (3)
  - Eyelid oedema [Recovered/Resolved]
  - Conjunctival hyperaemia [Recovered/Resolved]
  - Restless legs syndrome [Unknown]
